FAERS Safety Report 7553381-4 (Version None)
Quarter: 2011Q2

REPORT INFORMATION
  Report Type: 
  Country: None (occurrence: None)
  Receive Date: 20110617
  Receipt Date: 20110422
  Transmission Date: 20111010
  Serious: No
  Sender: FDA-Public Use
  Company Number: A0924284A

PATIENT
  Age: 74 Year
  Sex: Female

DRUGS (2)
  1. PROMACTA [Suspect]
     Indication: IDIOPATHIC THROMBOCYTOPENIC PURPURA
     Dosage: 50MG PER DAY
     Route: 048
  2. XANAX [Suspect]

REACTIONS (2)
  - INCORRECT DOSE ADMINISTERED [None]
  - SOMNOLENCE [None]
